FAERS Safety Report 12393992 (Version 1)
Quarter: 2016Q2

REPORT INFORMATION
  Report Type: Spontaneous
  Country: US (occurrence: US)
  Receive Date: 20160523
  Receipt Date: 20160523
  Transmission Date: 20160815
  Serious: Yes (Other)
  Sender: FDA-Public Use
  Company Number: US-NOVOPROD-492433

PATIENT
  Sex: Female

DRUGS (1)
  1. NOVOLIN 70/30 [Suspect]
     Active Substance: INSULIN HUMAN
     Indication: TYPE 2 DIABETES MELLITUS
     Dosage: UNK
     Route: 058
     Dates: start: 201512

REACTIONS (2)
  - Diabetic neuropathy [Not Recovered/Not Resolved]
  - Diabetic retinopathy [Not Recovered/Not Resolved]

NARRATIVE: CASE EVENT DATE: 201512
